FAERS Safety Report 5527963-5 (Version None)
Quarter: 2007Q4

REPORT INFORMATION
  Report Type: 
  Country: None (occurrence: None)
  Receive Date: 20071123
  Receipt Date: 20071108
  Transmission Date: 20080405
  Serious: Yes (Congenital Anomaly)
  Sender: FDA-Public Use
  Company Number: 8027954

PATIENT

DRUGS (2)
  1. KEPPRA [Suspect]
     Dosage: 1000 MG /D TRP
     Route: 064
  2. MULTI-VITAMIN [Concomitant]

REACTIONS (3)
  - DRUG EXPOSURE DURING PREGNANCY [None]
  - MULTIPLE GASTROINTESTINAL ATRESIAS [None]
  - VENTRICULAR SEPTAL DEFECT [None]
